FAERS Safety Report 5743004-9 (Version None)
Quarter: 2008Q2

REPORT INFORMATION
  Report Type: 
  Country: None (occurrence: None)
  Receive Date: 20080519
  Receipt Date: 20080508
  Transmission Date: 20081010
  Serious: Yes (Death)
  Sender: FDA-Public Use
  Company Number: AU-SANOFI-SYNTHELABO-F01200600995

PATIENT
  Sex: Male

DRUGS (7)
  1. DIAFORMIN [Concomitant]
     Dates: start: 20050415
  2. LOPID [Concomitant]
     Dosage: UNK
     Dates: start: 20030615
  3. BEVACIZUMAB [Suspect]
     Dosage: Q2W OR Q3W
     Route: 042
     Dates: start: 20060314, end: 20060314
  4. LEUCOVORIN CALCIUM [Suspect]
     Route: 042
  5. FLUOROURACIL [Suspect]
     Dosage: 400MG/M2 IV BOLUS AND 600MG/M2 CONTINUOUS INFUSION Q2W
     Route: 042
     Dates: start: 20051228, end: 20051228
  6. FLUOROURACIL [Suspect]
     Route: 042
     Dates: start: 20051228, end: 20051229
  7. OXALIPLATIN [Suspect]
     Indication: COLON CANCER
     Dosage: Q2W
     Route: 042
     Dates: start: 20051228, end: 20051228

REACTIONS (1)
  - DEATH [None]
